FAERS Safety Report 5487710-2 (Version None)
Quarter: 2007Q4

REPORT INFORMATION
  Report Type: 
  Country: None (occurrence: None)
  Receive Date: 20071017
  Receipt Date: 20071011
  Transmission Date: 20080405
  Serious: Yes (Death, Other)
  Sender: FDA-Public Use
  Company Number: PHBS2007JP15493

PATIENT
  Age: 1 Year
  Sex: Male
  Weight: 8.5 kg

DRUGS (4)
  1. NEORAL [Suspect]
     Indication: BONE MARROW TRANSPLANT
     Dosage: UNK, UNK
     Route: 048
     Dates: end: 20030814
  2. METHOTREXATE [Concomitant]
     Indication: BONE MARROW TRANSPLANT
     Dosage: 10 MG/M2, UNK
     Route: 042
  3. SANDIMMUNE [Suspect]
     Indication: BONE MARROW TRANSPLANT
     Dosage: 1.5 MG/KG
     Route: 042
  4. ENDOXAN [Concomitant]
     Indication: BONE MARROW TRANSPLANT

REACTIONS (4)
  - ACUTE GRAFT VERSUS HOST DISEASE [None]
  - ACUTE MYELOID LEUKAEMIA RECURRENT [None]
  - IMMUNOSUPPRESSANT DRUG LEVEL DECREASED [None]
  - STEM CELL TRANSPLANT [None]
